FAERS Safety Report 11683888 (Version 1)
Quarter: 2015Q4

REPORT INFORMATION
  Report Type: Spontaneous
  Country: US (occurrence: US)
  Receive Date: 20151029
  Receipt Date: 20151029
  Transmission Date: 20160304
  Serious: No
  Sender: FDA-Public Use
  Company Number: US-TARO-2015TAR00886

PATIENT
  Age: 68 Year
  Sex: Female
  Weight: 61.22 kg

DRUGS (4)
  1. PRILOSEC [Concomitant]
     Active Substance: OMEPRAZOLE MAGNESIUM
     Dosage: 20.6 MG, UNK
  2. BYSTOLIC [Concomitant]
     Active Substance: NEBIVOLOL HYDROCHLORIDE
     Dosage: 5 MG, UNK
  3. WOMEN^S ONE MULTIVITAMIN [Concomitant]
     Dosage: UNK MG, UNK
  4. TRIAMCINOLONE UNSPECIFIED [Suspect]
     Active Substance: TRIAMCINOLONE
     Indication: PARAESTHESIA ORAL
     Dosage: UNK UNK, 1X/DAY
     Dates: start: 2015

REACTIONS (1)
  - Drug ineffective [Unknown]

NARRATIVE: CASE EVENT DATE: 2015
